FAERS Safety Report 4950913-7 (Version None)
Quarter: 2006Q1

REPORT INFORMATION
  Report Type: 
  Country: None (occurrence: None)
  Receive Date: 20060322
  Receipt Date: 20060309
  Transmission Date: 20060701
  Serious: Yes (Other)
  Sender: FDA-Public Use
  Company Number: FR-GILEAD-2006-0009304

PATIENT
  Age: 55 Year
  Sex: Male

DRUGS (6)
  1. HEPSERA [Suspect]
     Indication: HEPATITIS B
     Dates: end: 20030901
  2. HEPSERA [Suspect]
     Dates: start: 20030901, end: 20031001
  3. HEPSERA [Suspect]
     Dates: start: 20031001, end: 20031101
  4. LAMIVUDINE [Concomitant]
     Indication: HEPATITIS B
     Dates: start: 19980801, end: 19990601
  5. LAMIVUDINE [Concomitant]
     Dates: start: 20000101, end: 20030601
  6. PEGYLATED INTERFERON ALPHA 2A [Concomitant]
     Indication: HEPATITIS B
     Route: 042
     Dates: start: 20030601, end: 20030801

REACTIONS (15)
  - ANOREXIA [None]
  - ASCITES [None]
  - BACK PAIN [None]
  - DIARRHOEA [None]
  - DRUG INTOLERANCE [None]
  - DRY MOUTH [None]
  - GENERAL PHYSICAL HEALTH DETERIORATION [None]
  - HEPATIC FAILURE [None]
  - JAUNDICE [None]
  - OEDEMA [None]
  - OVERDOSE [None]
  - RENAL FAILURE [None]
  - THROMBOCYTOPENIA [None]
  - VIRAL MUTATION IDENTIFIED [None]
  - WEIGHT DECREASED [None]
